FAERS Safety Report 4881776-6 (Version None)
Quarter: 2006Q1

REPORT INFORMATION
  Report Type: 
  Country: None (occurrence: None)
  Receive Date: 20060117
  Receipt Date: 20060111
  Transmission Date: 20060701
  Serious: Yes (Death, Life-Threatening, Other)
  Sender: FDA-Public Use
  Company Number: GB-JNJFOC-20051103876

PATIENT
  Sex: Female
  Weight: 58 kg

DRUGS (5)
  1. REMICADE [Suspect]
     Indication: RHEUMATOID ARTHRITIS
     Route: 042
  2. SULFASALAZINE [Concomitant]
     Route: 065
  3. DICLOFENAC [Concomitant]
     Route: 065
  4. PARACETAMOL [Concomitant]
     Route: 065
  5. SALBUTAMOL [Concomitant]
     Route: 065

REACTIONS (3)
  - DUODENAL ULCER PERFORATION [None]
  - GASTROINTESTINAL DISORDER POSTOPERATIVE [None]
  - POSTOPERATIVE WOUND INFECTION [None]
